FAERS Safety Report 17996841 (Version 2)
Quarter: 2020Q4

REPORT INFORMATION
  Report Type: Other
  Country: FR (occurrence: FR)
  Receive Date: 20200708
  Receipt Date: 20201215
  Transmission Date: 20210113
  Serious: Yes (Hospitalization, Other)
  Sender: FDA-Public Use
  Company Number: FR-VALIDUS PHARMACEUTICALS LLC-FR-2020VAL000565

PATIENT

DRUGS (27)
  1. ATENOLOL. [Suspect]
     Active Substance: ATENOLOL
     Indication: HYPERTENSION
     Dosage: 50 MG, QD
     Route: 048
     Dates: end: 20200709
  2. PREDNISONE. [Concomitant]
     Active Substance: PREDNISONE
     Indication: PRODUCT USED FOR UNKNOWN INDICATION
     Dosage: UNK
  3. FLECAINE [Concomitant]
     Active Substance: FLECAINIDE
     Indication: PRODUCT USED FOR UNKNOWN INDICATION
     Dosage: UNK
  4. PLAQUENIL [Suspect]
     Active Substance: HYDROXYCHLOROQUINE SULFATE
     Indication: PRODUCT USE IN UNAPPROVED INDICATION
  5. ATORVASTATIN CALCIUM. [Suspect]
     Active Substance: ATORVASTATIN CALCIUM
     Indication: PROPHYLAXIS
     Dosage: 20 MG, QD
     Route: 048
     Dates: end: 20200519
  6. COLECALCIFEROL [Suspect]
     Active Substance: CHOLECALCIFEROL
     Indication: VITAMIN SUPPLEMENTATION
     Dosage: 1 UNK, QM
     Route: 048
     Dates: start: 20200430, end: 20200513
  7. AZITHROMYCIN ANHYDROUS. [Suspect]
     Active Substance: AZITHROMYCIN ANHYDROUS
     Dosage: 250 MG, QD
     Route: 048
     Dates: start: 202004, end: 20200430
  8. SULFAMETHOXAZOLE W/TRIMETHOPRIM [Suspect]
     Active Substance: SULFAMETHOXAZOLE\TRIMETHOPRIM
     Indication: LUNG DISORDER
     Dosage: 3 DF, BID
     Route: 042
     Dates: start: 20200406, end: 20200407
  9. NOVORAPID [Concomitant]
     Active Substance: INSULIN ASPART
     Indication: PRODUCT USED FOR UNKNOWN INDICATION
     Dosage: UNK
  10. NICARDIPINE [Suspect]
     Active Substance: NICARDIPINE
     Indication: HYPERTENSION
     Dosage: 100 MG, QD
     Route: 048
  11. FOLIC ACID. [Suspect]
     Active Substance: FOLIC ACID
     Indication: VITAMIN SUPPLEMENTATION
     Dosage: 5 MG, QD
     Route: 048
     Dates: start: 20200218, end: 20200430
  12. LANSOPRAZOLE. [Suspect]
     Active Substance: LANSOPRAZOLE
     Indication: PRODUCT USED FOR UNKNOWN INDICATION
     Dosage: 4 DF, QD
     Route: 048
     Dates: start: 20200405, end: 20200406
  13. PLAQUENIL [Suspect]
     Active Substance: HYDROXYCHLOROQUINE SULFATE
     Indication: CORONAVIRUS INFECTION
     Dosage: 400 MG, QD
     Route: 048
     Dates: start: 20200411, end: 20200423
  14. ALLOPURINOL. [Suspect]
     Active Substance: ALLOPURINOL
     Indication: GOUT
     Dosage: 300 MG, QD
     Route: 048
     Dates: end: 20200518
  15. AZITHROMYCIN ANHYDROUS. [Suspect]
     Active Substance: AZITHROMYCIN ANHYDROUS
     Indication: CORONAVIRUS INFECTION
     Dosage: 250 MG, QD
     Route: 048
     Dates: start: 20200411, end: 20200423
  16. FLECAINIDE ACETATE. [Suspect]
     Active Substance: FLECAINIDE ACETATE
     Indication: PRODUCT USED FOR UNKNOWN INDICATION
     Dosage: 100 MG, QD (BREAKABLE TABLET)
     Route: 048
  17. CEFEPIME HYDROCHLORIDE. [Suspect]
     Active Substance: CEFEPIME HYDROCHLORIDE
     Indication: LUNG DISORDER
     Dosage: 1 G, QD
     Route: 042
     Dates: start: 20200405, end: 20200406
  18. HEPARIN CALCIUM [Suspect]
     Active Substance: HEPARIN CALCIUM
     Indication: VASCULAR DISORDER PROPHYLAXIS
     Dosage: 10000 IU, QD
     Route: 058
     Dates: start: 20200405, end: 20200406
  19. LANTUS [Concomitant]
     Active Substance: INSULIN GLARGINE
     Indication: PRODUCT USED FOR UNKNOWN INDICATION
     Dosage: UNK
  20. ROVAMYCINE                         /00074401/ [Suspect]
     Active Substance: SPIRAMYCIN
     Indication: LUNG DISORDER
     Dosage: 1 DF, BID
     Route: 042
     Dates: start: 20200405, end: 20200406
  21. ARANESP [Concomitant]
     Active Substance: DARBEPOETIN ALFA
     Indication: PRODUCT USED FOR UNKNOWN INDICATION
     Dosage: UNK
     Dates: start: 202004, end: 20200518
  22. CORTANCYL [Suspect]
     Active Substance: PREDNISONE
     Indication: RENAL TRANSPLANT
     Dosage: 7.5 MG, QD (COMPRESSED)
     Route: 048
  23. FUROSEMIDE. [Concomitant]
     Active Substance: FUROSEMIDE
     Indication: PRODUCT USED FOR UNKNOWN INDICATION
     Dosage: UNK
  24. FUROSEMIDE. [Suspect]
     Active Substance: FUROSEMIDE
     Indication: HYPERTENSION
     Dosage: 120 MG, QD
     Route: 048
  25. LOXEN L P [Concomitant]
     Active Substance: NICARDIPINE HYDROCHLORIDE
     Indication: PRODUCT USED FOR UNKNOWN INDICATION
     Dosage: UNK
  26. ADVAGRAF [Concomitant]
     Active Substance: TACROLIMUS
     Indication: PRODUCT USED FOR UNKNOWN INDICATION
     Dosage: UNK
  27. ATORVASTATIN [Concomitant]
     Active Substance: ATORVASTATIN
     Indication: PRODUCT USED FOR UNKNOWN INDICATION
     Dosage: UNK

REACTIONS (4)
  - Off label use [Unknown]
  - Hepatocellular injury [Not Recovered/Not Resolved]
  - Rash pustular [Recovered/Resolved]
  - Cholestasis [Recovering/Resolving]

NARRATIVE: CASE EVENT DATE: 20200411
